FAERS Safety Report 6030685-8 (Version None)
Quarter: 2009Q1

REPORT INFORMATION
  Report Type: 
  Country: None (occurrence: None)
  Receive Date: 20090107
  Receipt Date: 20081231
  Transmission Date: 20090719
  Serious: Yes (Hospitalization)
  Sender: FDA-Public Use
  Company Number: NZ-ROXANE LABORATORIES, INC.-2008-RO-00507RO

PATIENT
  Age: 63 Year
  Sex: Female

DRUGS (12)
  1. MERCAPTOPURINE [Suspect]
     Indication: AUTOIMMUNE HEPATITIS
     Dosage: 125MG
  2. MERCAPTOPURINE [Suspect]
     Dosage: 50MG
  3. PREDNISONE [Suspect]
     Indication: AUTOIMMUNE HEPATITIS
     Dosage: 25MG
  4. PREDNISONE [Suspect]
     Dosage: 20MG
  5. HYDROCHLOROTHIAZIDE [Suspect]
  6. METOPROLOL [Suspect]
  7. QUINAPRIL [Suspect]
  8. ASPIRIN [Suspect]
  9. INSULIN [Suspect]
  10. OMEPRAZOLE [Suspect]
  11. ETIDRONATE DISODIUM [Suspect]
  12. METHYLPREDNISOLONE [Suspect]
     Indication: AUTOIMMUNE HEPATITIS
     Dosage: 1G
     Route: 042

REACTIONS (4)
  - CHOLESTASIS [None]
  - HEPATIC CIRRHOSIS [None]
  - HEPATOTOXICITY [None]
  - LABORATORY TEST ABNORMAL [None]
